FAERS Safety Report 9974153 (Version 1)
Quarter: 2014Q1

REPORT INFORMATION
  Report Type: Spontaneous
  Country: US (occurrence: US)
  Receive Date: 20140306
  Receipt Date: 20140306
  Transmission Date: 20141002
  Serious: No
  Sender: FDA-Public Use
  Company Number: US-ABBVIE-13P-163-1155037-00

PATIENT
  Age: 65 Year
  Sex: Male
  Weight: 55.84 kg

DRUGS (2)
  1. HUMIRA [Suspect]
     Indication: CROHN^S DISEASE
     Dosage: ABOUT 2 YEARS AGO
     Dates: start: 2011
  2. UNKNOWN MEDICATION [Concomitant]
     Indication: NAUSEA

REACTIONS (4)
  - Device malfunction [Unknown]
  - Injection site urticaria [Unknown]
  - Injection site pain [Recovered/Resolved]
  - Injection site haemorrhage [Recovered/Resolved]
